FAERS Safety Report 15623448 (Version 11)
Quarter: 2020Q4

REPORT INFORMATION
  Report Type: Spontaneous
  Country: US (occurrence: US)
  Receive Date: 20181115
  Receipt Date: 20201112
  Transmission Date: 20210113
  Serious: Yes (Other)
  Sender: FDA-Public Use
  Company Number: US-PFIZER INC-2018471904

PATIENT
  Age: 52 Year
  Sex: Male
  Weight: 128 kg

DRUGS (19)
  1. RAPAMUNE [Suspect]
     Active Substance: SIROLIMUS
     Dosage: 2 MG, DAILY
     Route: 048
     Dates: start: 20180202
  2. FUROSEMIDE. [Concomitant]
     Active Substance: FUROSEMIDE
     Dosage: 80 MG, AS NEEDED
     Route: 048
  3. TACROLIMUS. [Concomitant]
     Active Substance: TACROLIMUS
     Indication: HEART TRANSPLANT
     Dosage: 7 MG, DAILY [TAKE 4 MG (4 TABS) IN THE AM AND 3 MG (3 TABS) IN PM)]
     Route: 048
     Dates: start: 201611
  4. FUROSEMIDE. [Concomitant]
     Active Substance: FUROSEMIDE
     Indication: SWELLING
     Dosage: 40 MG, DAILY
     Route: 048
  5. MUPIROCIN. [Concomitant]
     Active Substance: MUPIROCIN
     Dosage: UNK, 3X/DAY(APPLY TO AFFECTED AREA 3 TIMES A DAY)
     Route: 061
  6. ASPIRIN 81 [Concomitant]
     Active Substance: ASPIRIN
     Dosage: 81 MG, DAILY
     Route: 048
  7. RAPAMUNE [Suspect]
     Active Substance: SIROLIMUS
     Indication: HEART TRANSPLANT
     Dosage: 1 MG, DAILY
     Route: 048
     Dates: start: 20170414, end: 201707
  8. ATORVASTATIN [Concomitant]
     Active Substance: ATORVASTATIN
     Dosage: 40 MG, DAILY
     Route: 048
  9. COLCRYS [Concomitant]
     Active Substance: COLCHICINE
     Dosage: 0.3 MG, DAILY (0.6 MG ORAL TABLET; SIG: TAKE 0.3 MG BY MOUTH DAILY. TAKE 1/2 TAB DAILY)
     Route: 048
  10. LEVEMIR [Concomitant]
     Active Substance: INSULIN DETEMIR
     Dosage: 30 IU, DAILY
     Route: 058
  11. HUMALOG [Concomitant]
     Active Substance: INSULIN LISPRO
     Dosage: 3 IU, 3X/DAY BEFORE MEAL
     Route: 058
  12. RAPAMUNE [Suspect]
     Active Substance: SIROLIMUS
     Dosage: 1 MG, DAILY
     Route: 048
  13. RAPAMUNE [Suspect]
     Active Substance: SIROLIMUS
     Dosage: 2 DF, DAILY (2 TABS BY MOUTH DAILY)
     Route: 048
  14. FUROSEMIDE. [Concomitant]
     Active Substance: FUROSEMIDE
     Dosage: 80 MG, 1X/DAY (EVERY MORNING)
     Route: 048
  15. HUMALOG [Concomitant]
     Active Substance: INSULIN LISPRO
     Dosage: 15 IU, 3X/DAY (BEFORE MEAL)
     Route: 058
  16. CEPHALEXIN. [Concomitant]
     Active Substance: CEPHALEXIN
     Dosage: 500 MG, 3X/DAY
     Route: 048
  17. RAPAMUNE [Suspect]
     Active Substance: SIROLIMUS
     Indication: HEART TRANSPLANT REJECTION
     Dosage: 1 MG, DAILY
     Route: 048
     Dates: start: 20170907
  18. PREDNISONE. [Concomitant]
     Active Substance: PREDNISONE
     Dosage: 5 MG, 1X/DAY [DAILY WITH BREAKFAST]
     Route: 048
     Dates: end: 2019
  19. LISINOPRIL. [Concomitant]
     Active Substance: LISINOPRIL
     Indication: BLOOD PRESSURE INCREASED
     Dosage: 5 MG, 1X/DAY
     Route: 048

REACTIONS (6)
  - Peripheral swelling [Unknown]
  - Drug level increased [Unknown]
  - Product use in unapproved indication [Unknown]
  - Off label use [Unknown]
  - Drug level decreased [Recovered/Resolved]
  - Renal impairment [Not Recovered/Not Resolved]

NARRATIVE: CASE EVENT DATE: 20170414
